FAERS Safety Report 12632693 (Version 2)
Quarter: 2016Q3

REPORT INFORMATION
  Report Type: Spontaneous
  Country: US (occurrence: US)
  Receive Date: 20160808
  Receipt Date: 20160808
  Transmission Date: 20161109
  Serious: No
  Sender: FDA-Public Use
  Company Number: US-BEH-2015056523

PATIENT
  Sex: Female
  Weight: 91 kg

DRUGS (7)
  1. HIZENTRA [Suspect]
     Active Substance: HUMAN IMMUNOGLOBULIN G
     Indication: PRODUCT USED FOR UNKNOWN INDICATION
     Route: 058
     Dates: start: 20120302
  2. CIPRO [Concomitant]
     Active Substance: CIPROFLOXACIN HYDROCHLORIDE
  3. L-M-X [Concomitant]
  4. EPI-PEN AUTOINJECTOR [Concomitant]
  5. DIAZEPAM. [Concomitant]
     Active Substance: DIAZEPAM
  6. DIPHENHYDRAMINE. [Concomitant]
     Active Substance: DIPHENHYDRAMINE
  7. MEPERIDINE [Concomitant]
     Active Substance: MEPERIDINE

REACTIONS (1)
  - Sinusitis [Unknown]
